FAERS Safety Report 9611173 (Version 2)
Quarter: 2013Q4

REPORT INFORMATION
  Report Type: Spontaneous
  Country: GB (occurrence: GB)
  Receive Date: 20131009
  Receipt Date: 20131009
  Transmission Date: 20140711
  Serious: Yes (Death, Other)
  Sender: FDA-Public Use
  Company Number: GB-ABBVIE-13P-167-1059807-00

PATIENT
  Age: 48 Year
  Sex: Male
  Weight: 91 kg

DRUGS (5)
  1. HUMIRA [Suspect]
     Indication: PSORIASIS
     Dosage: AT HOSPITAL START PERIOD 1121 DAYS
     Route: 058
     Dates: start: 20091230
  2. METHOTREXATE [Concomitant]
     Indication: PSORIASIS
     Dates: end: 20091230
  3. FOLIC ACID [Concomitant]
     Indication: PSORIASIS
     Dates: end: 20090930
  4. CODEINE PHOSPHATE [Concomitant]
     Indication: PRODUCT USED FOR UNKNOWN INDICATION
  5. DICLOFENAC [Concomitant]
     Indication: PRODUCT USED FOR UNKNOWN INDICATION

REACTIONS (40)
  - Sudden death [Fatal]
  - Arteriosclerosis coronary artery [Fatal]
  - Myocardial ischaemia [Fatal]
  - Abdominal pain [Fatal]
  - Feeling cold [Fatal]
  - Hyperhidrosis [Fatal]
  - Asthenia [Fatal]
  - Diarrhoea [Fatal]
  - Sciatica [Fatal]
  - Malaise [Fatal]
  - Acute myocardial infarction [Fatal]
  - Coronary artery occlusion [Fatal]
  - Myocardial ischaemia [Fatal]
  - Coronary artery thrombosis [Fatal]
  - Peritonitis [Fatal]
  - Pain in extremity [Fatal]
  - Chest pain [Fatal]
  - Arrhythmia [Fatal]
  - Arteriosclerosis coronary artery [Unknown]
  - Aortic arteriosclerosis [Unknown]
  - Hypophagia [Unknown]
  - Hepatic steatosis [Unknown]
  - Inflammation [Unknown]
  - Wound drainage [Unknown]
  - Diaphragmatic disorder [Unknown]
  - Pulmonary oedema [Unknown]
  - Pulmonary congestion [Unknown]
  - Lung consolidation [Unknown]
  - Cardiac failure congestive [Unknown]
  - Emphysema [Unknown]
  - Back disorder [Unknown]
  - Duodenal ulcer [Unknown]
  - Left ventricular hypertrophy [Unknown]
  - Gastroenteritis [Unknown]
  - Abscess [Unknown]
  - Rash erythematous [Unknown]
  - Psoriasis [Unknown]
  - Fall [Unknown]
  - Sepsis [Unknown]
  - Back pain [Unknown]
